FAERS Safety Report 12716185 (Version 3)
Quarter: 2016Q4

REPORT INFORMATION
  Report Type: Report from Study
  Country: CO (occurrence: CO)
  Receive Date: 20160906
  Receipt Date: 20161221
  Transmission Date: 20170207
  Serious: Yes (Hospitalization, Other)
  Sender: FDA-Public Use
  Company Number: PHHY2016CO047481

PATIENT
  Sex: Male
  Weight: 73 kg

DRUGS (3)
  1. SANDOSTATIN LAR DEPOT [Suspect]
     Active Substance: OCTREOTIDE ACETATE
     Indication: NEUROENDOCRINE TUMOUR
     Dosage: 30 MG, QMO
     Route: 030
     Dates: start: 20121201, end: 20160307
  2. OMEPRAZOLE. [Concomitant]
     Active Substance: OMEPRAZOLE
     Indication: PRODUCT USED FOR UNKNOWN INDICATION
     Route: 065
  3. PENICILLIN NOS [Suspect]
     Active Substance: PENICILLIN
     Indication: PRODUCT USED FOR UNKNOWN INDICATION
     Route: 065

REACTIONS (11)
  - Haemorrhage [Unknown]
  - Fatigue [Unknown]
  - Abdominal discomfort [Unknown]
  - Haemorrhoids [Recovered/Resolved]
  - Anaemia [Unknown]
  - Abasia [Unknown]
  - Abdominal pain upper [Unknown]
  - Gastritis [Unknown]
  - Depressed mood [Unknown]
  - Diarrhoea [Recovered/Resolved]
  - Discomfort [Unknown]
